FAERS Safety Report 14984067 (Version 1)
Quarter: 2018Q2

REPORT INFORMATION
  Report Type: Report from Study
  Country: BR (occurrence: BR)
  Receive Date: 20180607
  Receipt Date: 20180607
  Transmission Date: 20180711
  Serious: Yes (Other)
  Sender: FDA-Public Use
  Company Number: BR-ACTELION-A-CH2018-173272

PATIENT
  Age: 7 Year
  Sex: Female
  Weight: 30.5 kg

DRUGS (1)
  1. ZAVESCA [Suspect]
     Active Substance: MIGLUSTAT
     Indication: NIEMANN-PICK DISEASE
     Dosage: 300 MG, UNK
     Route: 048
     Dates: start: 20131225

REACTIONS (2)
  - Gastrostomy [Unknown]
  - Tracheostomy [Unknown]

NARRATIVE: CASE EVENT DATE: 2016
